FAERS Safety Report 16798564 (Version 2)
Quarter: 2019Q3

REPORT INFORMATION
  Report Type: Report from Study
  Country: EG (occurrence: EG)
  Receive Date: 20190912
  Receipt Date: 20190916
  Transmission Date: 20191005
  Serious: Yes (Other)
  Sender: FDA-Public Use
  Company Number: EG-BAYER-2019-163718

PATIENT
  Age: 28 Year
  Sex: Female

DRUGS (3)
  1. CLAMIN [CLARITHROMYCIN] [Concomitant]
     Indication: ASTHMA
  2. HEMOCLAR [PENTOSAN POLYSULFATE] [Concomitant]
  3. BETAFERON [Suspect]
     Active Substance: INTERFERON BETA-1B
     Indication: MULTIPLE SCLEROSIS
     Dosage: UNK
     Dates: start: 201807, end: 201907

REACTIONS (9)
  - Feeling hot [None]
  - Headache [Not Recovered/Not Resolved]
  - Swelling [None]
  - Hemianaesthesia [None]
  - Injection site pain [Not Recovered/Not Resolved]
  - Injection site discolouration [Unknown]
  - Mobility decreased [None]
  - Injection site mass [Unknown]
  - Central nervous system inflammation [None]

NARRATIVE: CASE EVENT DATE: 201807
